FAERS Safety Report 8511234-9 (Version None)
Quarter: 2012Q3

REPORT INFORMATION
  Report Type: 
  Country: None (occurrence: None)
  Receive Date: 20120716
  Receipt Date: 20120710
  Transmission Date: 20120928
  Serious: Yes (Hospitalization, Other)
  Sender: FDA-Public Use
  Company Number: US-SANOFI-AVENTIS-2012SA049351

PATIENT
  Sex: Male

DRUGS (3)
  1. SOLOSTAR [Suspect]
     Indication: TYPE 2 DIABETES MELLITUS
     Dates: start: 20120101
  2. GLYBURIDE [Suspect]
     Route: 048
  3. LANTUS [Suspect]
     Indication: TYPE 2 DIABETES MELLITUS
     Dosage: DOSE:10 UNIT(S)
     Route: 058
     Dates: start: 20120101

REACTIONS (7)
  - PROTEINURIA [None]
  - TOXICITY TO VARIOUS AGENTS [None]
  - RENAL CANCER [None]
  - ERUCTATION [None]
  - BLOOD GLUCOSE INCREASED [None]
  - RENAL DISORDER [None]
  - NAUSEA [None]
